FAERS Safety Report 25655200 (Version 1)
Quarter: 2025Q3

REPORT INFORMATION
  Report Type: Spontaneous
  Country: US (occurrence: None)
  Receive Date: 20250806
  Receipt Date: 20250806
  Transmission Date: 20251020
  Serious: No
  Sender: FDA-CTU
  Company Number: None

PATIENT
  Age: 83 Year
  Sex: Male
  Weight: 84.3 kg

DRUGS (2)
  1. VALSARTAN [Suspect]
     Active Substance: VALSARTAN
     Indication: Hypertension
     Dosage: FREQUENCY : DAILY;?
     Route: 048
     Dates: start: 20250626, end: 20250726
  2. VALSARTAN [Suspect]
     Active Substance: VALSARTAN
     Indication: Chronic kidney disease

REACTIONS (1)
  - Scintillating scotoma [None]

NARRATIVE: CASE EVENT DATE: 20250806
